FAERS Safety Report 9539526 (Version 1)
Quarter: 2013Q2

REPORT INFORMATION
  Report Type: Spontaneous
  Country: US (occurrence: None)
  Receive Date: 20130521
  Receipt Date: 20130521
  Transmission Date: 20140414
  Serious: No
  Sender: FDA-Public Use
  Company Number: 1000043945

PATIENT
  Age: 51 Year
  Sex: Female

DRUGS (5)
  1. TUDORZA PRESSAIR (ACLIDINIUM BROMIDE) (400 MICROGRAM, POWDER) [Suspect]
     Indication: CHRONIC OBSTRUCTIVE PULMONARY DISEASE
     Dosage: 400 MCG (400 MCG, 2 IN 1 D), ORAL
     Route: 048
     Dates: start: 20130329, end: 20130329
  2. COUMADIN (WARFARIN) (WARFARIN) [Concomitant]
  3. SIMVASTATIN (SIMVASTATIN) (SIMVASTATIN) [Concomitant]
  4. LISINOPRIL (LISINOPRIL) (LISINOPRIL) [Concomitant]
  5. DILTIAZEM (DILTIAZEM HYDROCHLORIDE) (DILTIAZEM HYDROCHLORIDE) [Concomitant]

REACTIONS (2)
  - Malaise [None]
  - Oral mucosal blistering [None]
